FAERS Safety Report 17752326 (Version 1)
Quarter: 2020Q2

REPORT INFORMATION
  Report Type: Report from Study
  Country: NL (occurrence: NL)
  Receive Date: 20200506
  Receipt Date: 20200506
  Transmission Date: 20200714
  Serious: Yes (Other)
  Sender: FDA-Public Use
  Company Number: NL-MYLANLABS-2020M1044326

PATIENT
  Age: 40 Year
  Sex: Female

DRUGS (4)
  1. AZATHIOPRINE. [Suspect]
     Active Substance: AZATHIOPRINE
     Indication: COLITIS ULCERATIVE
     Dosage: 50MG, 3X/D
     Route: 048
     Dates: start: 20030515, end: 20030701
  2. MESALAZINE [Concomitant]
     Active Substance: MESALAMINE
     Dosage: 500MG, 1X/D
     Route: 054
     Dates: start: 20000919, end: 20191121
  3. MESALAZINE [Concomitant]
     Active Substance: MESALAMINE
     Dosage: 500MG, ZN
     Route: 054
     Dates: start: 20200131
  4. MERCAPTOPURINE. [Concomitant]
     Active Substance: MERCAPTOPURINE
     Dosage: 50MG, 1X/D
     Route: 048
     Dates: start: 20030701, end: 20040601

REACTIONS (2)
  - Leukopenia [Recovered/Resolved]
  - Hepatic function abnormal [Recovered/Resolved]

NARRATIVE: CASE EVENT DATE: 20030701
